FAERS Safety Report 5854661-0 (Version None)
Quarter: 2008Q3

REPORT INFORMATION
  Report Type: 
  Country: None (occurrence: None)
  Receive Date: 20080822
  Receipt Date: 20080811
  Transmission Date: 20090109
  Serious: Yes (Hospitalization)
  Sender: FDA-Public Use
  Company Number: GB-PFIZER INC-2008067534

PATIENT
  Age: 63 Year
  Sex: Male

DRUGS (3)
  1. VIAGRA [Suspect]
     Indication: ERECTILE DYSFUNCTION
     Dosage: TEXT:25MG
     Route: 048
  2. BENDROFLUMETHIAZIDE [Concomitant]
     Route: 048
  3. RAMIPRIL [Concomitant]
     Route: 048

REACTIONS (1)
  - RETINAL VEIN OCCLUSION [None]
